FAERS Safety Report 5119017-7 (Version None)
Quarter: 2006Q3

REPORT INFORMATION
  Report Type: 
  Country: None (occurrence: None)
  Receive Date: 20060927
  Receipt Date: 20060914
  Transmission Date: 20061208
  Serious: Yes (Other)
  Sender: FDA-Public Use
  Company Number: 012384

PATIENT
  Age: 63 Year
  Sex: Male

DRUGS (5)
  1. PRIALT [Suspect]
     Indication: POST LAMINECTOMY SYNDROME
     Dosage: 0.08 UG, ONCE/HOUR, INTRATHECAL
     Route: 037
     Dates: start: 20050901
  2. WELLBUTRIN [Concomitant]
  3. VALIUM [Concomitant]
  4. DILAUDID [Concomitant]
  5. TESTOSTERONE [Concomitant]

REACTIONS (9)
  - ASTHENIA [None]
  - BACK INJURY [None]
  - DEPRESSION [None]
  - FALL [None]
  - INSOMNIA [None]
  - IRRITABILITY [None]
  - LOSS OF LIBIDO [None]
  - PAIN [None]
  - PROSTATE CANCER [None]
